FAERS Safety Report 4866713-2 (Version None)
Quarter: 2005Q4

REPORT INFORMATION
  Report Type: 
  Country: None (occurrence: None)
  Receive Date: 20051221
  Receipt Date: 20051206
  Transmission Date: 20060501
  Serious: Yes (Disabling, Other)
  Sender: FDA-Public Use
  Company Number: PHBS2005JP18184

PATIENT
  Age: 81 Year
  Sex: Male

DRUGS (4)
  1. VISUDYNE [Suspect]
     Indication: MACULAR DEGENERATION
     Dates: start: 20050428, end: 20050428
  2. NORVASC [Concomitant]
  3. MICARDIS [Concomitant]
  4. LIVALO [Concomitant]

REACTIONS (4)
  - BLINDNESS [None]
  - CHOROIDAL HAEMORRHAGE [None]
  - RETINAL HAEMORRHAGE [None]
  - VITREOUS HAEMORRHAGE [None]
